FAERS Safety Report 18185932 (Version 2)
Quarter: 2020Q4

REPORT INFORMATION
  Report Type: Spontaneous
  Country: IT (occurrence: IT)
  Receive Date: 20200824
  Receipt Date: 20201008
  Transmission Date: 20210113
  Serious: Yes (Other)
  Sender: FDA-Public Use
  Company Number: IT-AUROBINDO-AUR-APL-2020-040532

PATIENT
  Age: 50 Year
  Sex: Female

DRUGS (4)
  1. ALIROCUMAB [Suspect]
     Active Substance: ALIROCUMAB
     Dosage: 75 MILLIGRAM, 2 WEEK
     Route: 065
     Dates: start: 20200616
  2. ALIROCUMAB [Suspect]
     Active Substance: ALIROCUMAB
     Indication: DYSLIPIDAEMIA
     Dosage: 75 MILLIGRAM, 2 WEEK
     Route: 065
     Dates: start: 20181016, end: 20200310
  3. FOLIC ACID. [Concomitant]
     Active Substance: FOLIC ACID
     Indication: BLOOD HOMOCYSTEINE INCREASED
     Dosage: UNK
     Route: 065
     Dates: start: 20181016
  4. EZETIMIBE TABLETS [Suspect]
     Active Substance: EZETIMIBE
     Indication: LIPIDS INCREASED
     Dosage: UNK
     Route: 065
     Dates: start: 20181016, end: 202002

REACTIONS (6)
  - Arthralgia [Not Recovered/Not Resolved]
  - Osteitis [Recovering/Resolving]
  - Pneumonia [Recovered/Resolved]
  - Drug intolerance [Recovered/Resolved]
  - Intervertebral disc degeneration [Recovering/Resolving]
  - Vitamin D deficiency [Not Recovered/Not Resolved]

NARRATIVE: CASE EVENT DATE: 20190812
